FAERS Safety Report 9624688 (Version 2)
Quarter: 2013Q4

REPORT INFORMATION
  Report Type: Spontaneous
  Country: AU (occurrence: AU)
  Receive Date: 20131015
  Receipt Date: 20131015
  Transmission Date: 20140711
  Serious: Yes (Death, Life-Threatening, Other)
  Sender: FDA-Public Use
  Company Number: AU-ABBVIE-04P-008-0280766-00

PATIENT
  Age: 69 Year
  Sex: Female

DRUGS (6)
  1. VALPROATE SODIUM [Suspect]
     Indication: EPILEPSY
     Route: 048
     Dates: start: 20040229, end: 20040510
  2. NEO MERCAZOLE [Suspect]
     Indication: HYPERTHYROIDISM
     Route: 048
     Dates: start: 20040301, end: 20040510
  3. AMIODARONE HYDROCHLORIDE [Suspect]
     Indication: ATRIAL FIBRILLATION
     Route: 048
     Dates: start: 20040318, end: 20040510
  4. WARFARIN [Suspect]
     Indication: ATRIAL FIBRILLATION
     Route: 048
     Dates: start: 20040325, end: 20040510
  5. OMEPRAZOLE [Suspect]
     Indication: OESOPHAGEAL DISORDER
     Route: 048
     Dates: end: 20040510
  6. PHENYTOIN SODIUM [Suspect]
     Indication: EPILEPSY
     Dates: start: 20040301, end: 20040510

REACTIONS (13)
  - Coma hepatic [Fatal]
  - Hepatic failure [Fatal]
  - Jaundice [Unknown]
  - Delirium [Unknown]
  - Hepatic encephalopathy [Unknown]
  - Cardiomegaly [Fatal]
  - Hepatorenal syndrome [Fatal]
  - Dyspnoea exertional [Fatal]
  - Hypotension [Fatal]
  - Hyperthyroidism [Fatal]
  - Blindness unilateral [Unknown]
  - Depressed level of consciousness [Unknown]
  - Exophthalmos [Unknown]
